FAERS Safety Report 15958201 (Version 3)
Quarter: 2019Q2

REPORT INFORMATION
  Report Type: Report from Study
  Country: IT (occurrence: IT)
  Receive Date: 20190213
  Receipt Date: 20190623
  Transmission Date: 20190711
  Serious: Yes (Hospitalization, Other)
  Sender: FDA-Public Use
  Company Number: PHHO2019IT001273

PATIENT
  Age: 12 Year
  Sex: Female
  Weight: 28 kg

DRUGS (5)
  1. COTRIMOXAZOLE [Concomitant]
     Active Substance: SULFAMETHOXAZOLE\TRIMETHOPRIM
     Indication: PRODUCT USED FOR UNKNOWN INDICATION
     Dosage: 10 ML, QW
     Route: 048
     Dates: start: 20181108
  2. HYDROCORTISONE. [Concomitant]
     Active Substance: HYDROCORTISONE
     Indication: HYPOTHALAMIC PITUITARY ADRENAL AXIS SUPPRESSION
     Dosage: 10 MG, QD
     Route: 048
     Dates: start: 20181108
  3. TRAMETINIB [Suspect]
     Active Substance: TRAMETINIB
     Indication: GLIOMA
     Dosage: 1 MG, QD
     Route: 048
     Dates: start: 20181207, end: 20190124
  4. CHOLECALCIFEROL [Concomitant]
     Active Substance: CHOLECALCIFEROL
     Indication: VITAMIN D DEFICIENCY
     Dosage: 2 GTT, QD
     Route: 048
     Dates: start: 20180817
  5. DABRAFENIB [Suspect]
     Active Substance: DABRAFENIB
     Indication: GLIOMA
     Dosage: 60 MG, BID
     Route: 048
     Dates: start: 20181207, end: 20190124

REACTIONS (2)
  - General physical health deterioration [Not Recovered/Not Resolved]
  - Headache [Not Recovered/Not Resolved]

NARRATIVE: CASE EVENT DATE: 20190124
